FAERS Safety Report 5838216-X (Version None)
Quarter: 2008Q3

REPORT INFORMATION
  Report Type: 
  Country: None (occurrence: None)
  Receive Date: 20080808
  Receipt Date: 20080801
  Transmission Date: 20090109
  Serious: Yes (Hospitalization)
  Sender: FDA-Public Use
  Company Number: FR-ASTRAZENECA-2008CG01171

PATIENT
  Age: 27521 Day
  Sex: Male

DRUGS (21)
  1. NEXIUM [Suspect]
     Route: 048
     Dates: end: 20080701
  2. ZYLORIC [Suspect]
     Indication: MULTIPLE MYELOMA
     Route: 048
     Dates: start: 20080522, end: 20080627
  3. ZYLORIC [Suspect]
     Route: 048
     Dates: start: 20080702, end: 20080705
  4. THALIDOMIDE [Suspect]
     Indication: MULTIPLE MYELOMA
     Route: 048
     Dates: start: 20080609, end: 20080627
  5. THALIDOMIDE [Suspect]
     Route: 048
     Dates: start: 20080702, end: 20080705
  6. OROKEN [Suspect]
     Indication: INFECTION PROPHYLAXIS
     Route: 048
     Dates: start: 20080609, end: 20080704
  7. MECIR L.P. [Suspect]
     Indication: BENIGN PROSTATIC HYPERPLASIA
     Route: 048
     Dates: start: 20080613, end: 20080706
  8. MECIR L.P. [Suspect]
     Route: 048
     Dates: start: 20080702, end: 20080705
  9. CIPROFLOXACIN [Concomitant]
     Indication: PYELONEPHRITIS ACUTE
     Dates: start: 20080515, end: 20080518
  10. ROCEPHIN [Concomitant]
     Indication: PYELONEPHRITIS ACUTE
     Dates: start: 20080518, end: 20080520
  11. ROCEPHIN [Concomitant]
     Indication: URINARY TRACT INFECTION
     Dates: start: 20080518, end: 20080520
  12. ROCEPHIN [Concomitant]
     Dates: start: 20080616, end: 20080620
  13. ROCEPHIN [Concomitant]
     Dates: start: 20080616, end: 20080620
  14. DEXAMETHASONE [Concomitant]
     Indication: MULTIPLE MYELOMA
     Route: 042
     Dates: start: 20080521, end: 20080524
  15. ALKERAN [Concomitant]
     Indication: MULTIPLE MYELOMA
     Dates: start: 20080523, end: 20080527
  16. ASPEGIC 325 [Concomitant]
     Indication: MULTIPLE MYELOMA
     Dates: start: 20080609
  17. PROSCAR [Concomitant]
     Indication: BENIGN PROSTATIC HYPERPLASIA
  18. OFLOCET [Concomitant]
     Indication: URINARY TRACT INFECTION
     Dates: start: 20080616
  19. FOSRENOL [Concomitant]
     Dates: end: 20080501
  20. EPREX [Concomitant]
  21. STILNOX [Concomitant]

REACTIONS (2)
  - DRUG RASH WITH EOSINOPHILIA AND SYSTEMIC SYMPTOMS [None]
  - VARICELLA [None]
